FAERS Safety Report 6387480-X (Version None)
Quarter: 2009Q4

REPORT INFORMATION
  Report Type: 
  Country: None (occurrence: None)
  Receive Date: 20091005
  Receipt Date: 20090924
  Transmission Date: 20100525
  Serious: Yes (Hospitalization)
  Sender: FDA-Public Use
  Company Number: US-BIOGENIDEC-2009BI001367

PATIENT
  Age: 31 Year
  Sex: Female
  Weight: 49 kg

DRUGS (4)
  1. AVONEX [Suspect]
     Indication: MULTIPLE SCLEROSIS
     Route: 030
     Dates: start: 20060206, end: 20061013
  2. AVONEX [Suspect]
     Route: 030
     Dates: start: 20061202
  3. AVONEX [Suspect]
     Route: 030
     Dates: start: 20040101, end: 20040101
  4. AVONEX [Suspect]
     Route: 030
     Dates: start: 20041004, end: 20050930

REACTIONS (12)
  - ANKLE FRACTURE [None]
  - BRACHIAL PLEXUS INJURY [None]
  - CONVULSION [None]
  - FOOT FRACTURE [None]
  - HYPOAESTHESIA [None]
  - INFLUENZA LIKE ILLNESS [None]
  - MUSCLE RUPTURE [None]
  - MUSCULAR WEAKNESS [None]
  - PERIORBITAL HAEMATOMA [None]
  - ROAD TRAFFIC ACCIDENT [None]
  - UPPER LIMB FRACTURE [None]
  - VOMITING [None]
